FAERS Safety Report 26084311 (Version 2)
Quarter: 2025Q4

REPORT INFORMATION
  Report Type: Spontaneous
  Country: US (occurrence: US)
  Receive Date: 20251124
  Receipt Date: 20251201
  Transmission Date: 20260117
  Serious: Yes (Other)
  Sender: BELCHER PHARMACEUTICALS
  Company Number: US-BELCHER PHARMACEUTICALS, LLC-2025US002038

PATIENT

DRUGS (5)
  1. SEMAGLUTIDE [Suspect]
     Active Substance: SEMAGLUTIDE
     Indication: Product used for unknown indication
     Dosage: 5 MG/2 ML (2.5 MG/ML), 8 UNITS (0.2 MG), ONCE A WEEK, FROM WEEKS 1-4
     Route: 065
  2. SEMAGLUTIDE [Suspect]
     Active Substance: SEMAGLUTIDE
     Dosage: 5 MG/2 ML (2.5 MG/ML), ONCE A WEEK,16 UNITS (0.4 MG) FROM WEEKS 5-8
     Route: 065
  3. SEMAGLUTIDE [Suspect]
     Active Substance: SEMAGLUTIDE
     Dosage: 5 MG/2 ML (2.5 MG/ML), ONCE A WEEK, 32 UNITS (0.8 MG) FROM WEEK 9-12
     Route: 065
  4. SEMAGLUTIDE [Suspect]
     Active Substance: SEMAGLUTIDE
     Dosage: 5 MG/2 ML (2.5 MG/ML), ONCE A WEEK, 42 UNITS (1.2 MG) FROM WEEK 13 ONWARDS
     Route: 065
  5. SEMAGLUTIDE [Suspect]
     Active Substance: SEMAGLUTIDE
     Dosage: 5 MG/2 ML (2.5 MG/ML), ONCE A WEEK

REACTIONS (1)
  - Pancreatitis [Recovered/Resolved]

NARRATIVE: CASE EVENT DATE: 20250401
